FAERS Safety Report 4303943-2 (Version None)
Quarter: 2004Q1

REPORT INFORMATION
  Report Type: 
  Country: None (occurrence: None)
  Receive Date: 20040225
  Receipt Date: 20031109
  Transmission Date: 20041129
  Serious: Yes (Other)
  Sender: FDA-Public Use
  Company Number: DE-ROCHE-351781

PATIENT
  Age: 63 Year
  Sex: Female
  Weight: 65 kg

DRUGS (9)
  1. PEGASYS [Suspect]
     Indication: HEPATITIS C
     Route: 058
     Dates: start: 20030514, end: 20031010
  2. REBETOL [Suspect]
     Indication: HEPATITIS C
     Route: 048
     Dates: start: 20030514, end: 20031010
  3. INSIDON [Concomitant]
     Dosage: DOSAGE REPORTED AS 1-2 TABLETS / DAY
     Route: 048
  4. VITAMINE C [Concomitant]
     Indication: ANAEMIA
     Route: 048
  5. VITAMINE E [Concomitant]
     Indication: ANAEMIA
     Route: 048
  6. GREEN TEA [Concomitant]
     Dosage: PATIENT HAD DRUNK CAMELLIA EVERY DAY FOR THE PAST 5 YEARS.
     Route: 048
  7. CEBION [Concomitant]
     Indication: ANAEMIA
     Dates: start: 20030808, end: 20031015
  8. DETULIN 400 [Concomitant]
     Indication: ANAEMIA
     Dates: start: 20030808, end: 20031015
  9. INSIDON [Concomitant]

REACTIONS (24)
  - ABDOMINAL PAIN UPPER [None]
  - ANTINUCLEAR ANTIBODY POSITIVE [None]
  - ANXIETY [None]
  - BACTERIA URINE IDENTIFIED [None]
  - CARDIOVASCULAR DISORDER [None]
  - DISEASE PROGRESSION [None]
  - DRUG TOXICITY [None]
  - FATIGUE [None]
  - GAMMA-GLUTAMYLTRANSFERASE INCREASED [None]
  - HAEMATOCRIT DECREASED [None]
  - HAEMOGLOBIN DECREASED [None]
  - HEPATIC FIBROSIS [None]
  - HEPATIC STEATOSIS [None]
  - HEPATOCELLULAR DAMAGE [None]
  - HEPATOMEGALY [None]
  - INSOMNIA [None]
  - LIVER DISORDER [None]
  - LYMPHADENOPATHY [None]
  - MEAN CELL VOLUME ABNORMAL [None]
  - NERVOUSNESS [None]
  - RED BLOOD CELL COUNT DECREASED [None]
  - RESTLESSNESS [None]
  - SMOOTH MUSCLE ANTIBODY POSITIVE [None]
  - WEIGHT DECREASED [None]
